FAERS Safety Report 10421011 (Version 1)
Quarter: 2014Q3

REPORT INFORMATION
  Report Type: Spontaneous
  Country: DK (occurrence: None)
  Receive Date: 20140828
  Receipt Date: 20140828
  Transmission Date: 20150326
  Serious: No
  Sender: FDA-Public Use
  Company Number: DK-2014-3349

PATIENT
  Age: 74 Year
  Sex: Female

DRUGS (2)
  1. CISPLATIN (CISPLATIN) [Suspect]
     Active Substance: CISPLATIN
     Indication: ADENOCARCINOMA
     Dosage: ON DAY 1?
  2. VINORELBINE INN [Suspect]
     Active Substance: VINORELBINE TARTRATE
     Indication: ADENOCARCINOMA
     Dosage: ON DAY 1 AND 8

REACTIONS (7)
  - Dyspnoea [None]
  - Diarrhoea [None]
  - Fatigue [None]
  - Skin infection [None]
  - Conjunctivitis [None]
  - Rash [None]
  - Activities of daily living impaired [None]
